FAERS Safety Report 18356390 (Version 4)
Quarter: 2020Q4

REPORT INFORMATION
  Report Type: Spontaneous
  Country: GB (occurrence: GB)
  Receive Date: 20201007
  Receipt Date: 20201223
  Transmission Date: 20210114
  Serious: Yes (Hospitalization)
  Sender: FDA-Public Use
  Company Number: GB-IPSEN BIOPHARMACEUTICALS, INC.-2020-18621

PATIENT
  Age: 66 Year
  Sex: Female
  Weight: 57.4 kg

DRUGS (12)
  1. CHLORPHENAMINE [Concomitant]
     Active Substance: CHLORPHENIRAMINE MALEATE
     Dosage: LAST ISSUED: 06-MAY-2020; 12 MAX 12 ALLOWED; (28) TABLET 1 TABLET AT BEDTIME WHEN NEEDED
  2. SOMATULINE AUTOGEL [Suspect]
     Active Substance: LANREOTIDE ACETATE
     Indication: NEUROENDOCRINE TUMOUR
     Route: 058
     Dates: start: 20200923, end: 20201117
  3. PREGABALIN. [Concomitant]
     Active Substance: PREGABALIN
     Dosage: LAST ISSUED: 06-OCT-2020; 1 MAX 3 ALLOWED SUPPLY: 56 (CAPSULES) 1CAPSULE 2 IN 1 DAY
  4. APIXABAN [Concomitant]
     Active Substance: APIXABAN
     Dosage: (56) TABLET; 1 TABLET TO BE TAKEN 2 IN1 DAY12 HOURS APART
  5. RISPERIDONE. [Concomitant]
     Active Substance: RISPERIDONE
     Dosage: UNTIL:29-DEC-2020; LAST ISSUED: 01-DEC-2020; 3 MAX 3 ALLOWED EVERY 28 DAYS; TABLET 1 TDS
  6. CITALOPRAM [Concomitant]
     Active Substance: CITALOPRAM HYDROBROMIDE
     Dosage: UNTIL:29-DEC-2020; LAST ISSUED: 01-DEC-2020; 3 MAX 3 ALLOWED EVERY 28 DAYS; TABLET ONE A DAY
  7. BECONASE AQ [Concomitant]
     Active Substance: BECLOMETHASONE DIPROPIONATE MONOHYDRATE
     Dosage: 50MG/DOSE; LAST ISSUED: 06-OCT-2020; 2 MAX 2 ALLOWED; (200) DOSE ML 2 DOSES TO EACH NOSTRILS
  8. CREON [Concomitant]
     Active Substance: PANCRELIPASE AMYLASE\PANCRELIPASE LIPASE\PANCRELIPASE PROTEASE
     Dosage: 10000;UNTIL: 30-DEC-2020;LAST ISSUED: 02-DEC-2020;3 MAX 3 ALLOWED EVERY 28 DAYS; 4 CAPSULE WITH MEAL
  9. RAMIPRIL. [Concomitant]
     Active Substance: RAMIPRIL
     Dosage: UNTIL:29-DEC-2020; LAST ISSUED: 01-DEC-2020; 3 MAX 3 ALLOWED EVERY 28 DAYS; 1 CAPSULE ONCE A DAY
  10. ATORVASTIN [Concomitant]
     Active Substance: ATORVASTATIN
     Dosage: UNTIL:29-DEC-2020; LAST ISSUED: 01-DEC-2020; 3 MAX 3 ALLOWED EVERY 28 DAYS; TAKE ONE DAILY
  11. ZAPAIN [Concomitant]
     Active Substance: ACETAMINOPHEN\CODEINE PHOSPHATE
     Dosage: 30MG/500MG UNTIL:29-DEC-2020; LAST ISSUED: 01-DEC-2020; 3 MAX 3 ALLOWED EVERY 28 DAYS; 1 CAPSULE TID
  12. LACTULOSE. [Concomitant]
     Active Substance: LACTULOSE
     Indication: CONSTIPATION
     Dosage: 3.1-3.7G/ML; LAST ISSUED: 29-JUL-2020; 1 MAX 3 ALLOWED; (500) ML UP TO 15 ML 2 IN DAY
     Route: 048

REACTIONS (5)
  - Amnesia [Recovered/Resolved with Sequelae]
  - Ocular hyperaemia [Recovered/Resolved]
  - Confusional state [Recovered/Resolved with Sequelae]
  - Atrial fibrillation [Unknown]
  - Aphasia [Recovered/Resolved]

NARRATIVE: CASE EVENT DATE: 20200924
